FAERS Safety Report 16834568 (Version 1)
Quarter: 2019Q3

REPORT INFORMATION
  Report Type: Report from Study
  Country: US (occurrence: US)
  Receive Date: 20190920
  Receipt Date: 20190920
  Transmission Date: 20191005
  Serious: Yes (Hospitalization)
  Sender: FDA-Public Use
  Company Number: US-BAYER-2019-170670

PATIENT
  Age: 72 Year
  Sex: Female
  Weight: 64.85 kg

DRUGS (3)
  1. UPTRAVI [Suspect]
     Active Substance: SELEXIPAG
     Dosage: 400 ?G
  2. ADEMPAS [Suspect]
     Active Substance: RIOCIGUAT
     Indication: PULMONARY ARTERIAL HYPERTENSION
     Dosage: 1 MG, TID
     Route: 048
     Dates: start: 20190801
  3. UPTRAVI [Suspect]
     Active Substance: SELEXIPAG
     Dosage: UNK

REACTIONS (5)
  - Weight decreased [None]
  - Fall [None]
  - Hypotension [None]
  - Chest pain [None]
  - Muscular weakness [None]

NARRATIVE: CASE EVENT DATE: 20190911
